FAERS Safety Report 5822871-4 (Version None)
Quarter: 2008Q3

REPORT INFORMATION
  Report Type: 
  Country: None (occurrence: None)
  Receive Date: 20080724
  Receipt Date: 20080724
  Transmission Date: 20090109
  Serious: Yes (Life-Threatening, Hospitalization)
  Sender: FDA-Public Use
  Company Number: None

PATIENT
  Age: 51 Year
  Sex: Male
  Weight: 79.3795 kg

DRUGS (1)
  1. CHANTIX [Suspect]
     Indication: SMOKING CESSATION THERAPY
     Dosage: 1  2 TIMES A DAY
     Dates: start: 20070201, end: 20070302

REACTIONS (20)
  - ABNORMAL DREAMS [None]
  - ANAEMIA [None]
  - BLOOD GLUCOSE INCREASED [None]
  - DEPRESSION [None]
  - EAR PAIN [None]
  - FALL [None]
  - FATIGUE [None]
  - FINGER AMPUTATION [None]
  - GALLBLADDER DISORDER [None]
  - HEPATIC ENZYME INCREASED [None]
  - INFLUENZA LIKE ILLNESS [None]
  - INSOMNIA [None]
  - NECK PAIN [None]
  - NERVOUSNESS [None]
  - PAIN [None]
  - SKIN DISCOLOURATION [None]
  - TONGUE BITING [None]
  - VASCULITIS [None]
  - VISION BLURRED [None]
  - WEIGHT INCREASED [None]
